FAERS Safety Report 7470423-5 (Version None)
Quarter: 2011Q2

REPORT INFORMATION
  Report Type: 
  Country: None (occurrence: None)
  Receive Date: 20110510
  Receipt Date: 20110324
  Transmission Date: 20111010
  Serious: Yes (Hospitalization)
  Sender: FDA-Public Use
  Company Number: US-BAYER-201038183NA

PATIENT
  Age: 20 Year
  Sex: Female
  Weight: 62.132 kg

DRUGS (6)
  1. YASMIN [Suspect]
     Indication: PROPHYLAXIS
     Dosage: UNK
     Dates: start: 20050101, end: 20090101
  2. YASMIN [Suspect]
     Indication: ORAL CONTRACEPTION
  3. YAZ [Suspect]
     Indication: ORAL CONTRACEPTION
     Dosage: UNK
     Dates: start: 20050101, end: 20090101
  4. YAZ [Suspect]
     Indication: PROPHYLAXIS
  5. DROSPIRENONE AND ETHINYL ESTRADIOL [Suspect]
     Indication: PRODUCT USED FOR UNKNOWN INDICATION
  6. PEPTO-BISMOL [Concomitant]
     Indication: ABDOMINAL DISCOMFORT
     Dosage: 2 DF, UNK

REACTIONS (3)
  - BILIARY DYSKINESIA [None]
  - CHOLECYSTITIS ACUTE [None]
  - CHOLECYSTITIS CHRONIC [None]
